FAERS Safety Report 19226269 (Version 2)
Quarter: 2022Q2

REPORT INFORMATION
  Report Type: Spontaneous
  Country: US (occurrence: None)
  Receive Date: 20210505
  Receipt Date: 20220419
  Transmission Date: 20220721
  Serious: No
  Sender: FDA-Public Use
  Company Number: US-ROCHE-2760486

PATIENT
  Sex: Female
  Weight: 51.756 kg

DRUGS (1)
  1. AVASTIN [Suspect]
     Active Substance: BEVACIZUMAB
     Indication: Brain neoplasm benign
     Route: 042

REACTIONS (3)
  - Maternal exposure during pregnancy [Unknown]
  - Off label use [Unknown]
  - No adverse event [Unknown]
